FAERS Safety Report 11552543 (Version 1)
Quarter: 2015Q3

REPORT INFORMATION
  Report Type: Spontaneous
  Country: US (occurrence: US)
  Receive Date: 20150925
  Receipt Date: 20150925
  Transmission Date: 20151125
  Serious: No
  Sender: FDA-Public Use
  Company Number: US-PFIZER INC-2015310944

PATIENT
  Age: 72 Year
  Sex: Female

DRUGS (6)
  1. ZITHROMAX [Suspect]
     Active Substance: AZITHROMYCIN DIHYDRATE
     Dosage: 250 MG, (250MG TABLETS 2 TABLETS BY MOUTH AND 1 TABLET DAILY FOR 4 DAYS)
     Route: 048
     Dates: end: 2015
  2. ZANTAC [Suspect]
     Active Substance: RANITIDINE HYDROCHLORIDE
     Dosage: 75 MG, DAILY (75MG STARTED WITH 2 TABLETS A DAY FOR A WEEK AND WENT DOWN TO 1)
     Dates: end: 201509
  3. CLARITIN [Suspect]
     Active Substance: LORATADINE
     Indication: HYPERSENSITIVITY
     Dosage: 10 MG, 1X/DAY
  4. ZITHROMAX [Suspect]
     Active Substance: AZITHROMYCIN DIHYDRATE
     Dosage: 500 MG, (250MG TABLETS 2 TABLETS BY MOUTH AND 1 TABLET DAILY FOR 4 DAYS)
     Route: 048
  5. ZANTAC [Suspect]
     Active Substance: RANITIDINE HYDROCHLORIDE
     Indication: GASTROOESOPHAGEAL REFLUX DISEASE
     Dosage: 150 MG, DAILY (75MG STARTED WITH 2 TABLETS A DAY FOR A WEEK AND WENT DOWN TO 1)
     Dates: start: 2015
  6. CEFADROXIL. [Suspect]
     Active Substance: CEFADROXIL
     Indication: PNEUMONIA
     Dosage: 10 MG, 2X/DAY
     Dates: start: 201509

REACTIONS (1)
  - Drug ineffective [Unknown]
